FAERS Safety Report 14210899 (Version 1)
Quarter: 2017Q4

REPORT INFORMATION
  Report Type: Spontaneous
  Country: US (occurrence: US)
  Receive Date: 20171121
  Receipt Date: 20171121
  Transmission Date: 20180321
  Serious: No
  Sender: FDA-Public Use
  Company Number: US-BAUSCH-BL-2017-023385

PATIENT
  Sex: Female

DRUGS (6)
  1. PILOCAR [Concomitant]
     Indication: PRODUCT USED FOR UNKNOWN INDICATION
     Dosage: ONE DROP IN EVENING IN THE LEFT EYE AND ONE DROP THREE TIMES A DAY IN THE RIGHT EYE.
     Route: 047
  2. LOTEMAX [Suspect]
     Active Substance: LOTEPREDNOL ETABONATE
     Indication: POSTOPERATIVE CARE
     Dosage: ONE DROP EVERY 2 HOURS IN THE LEFT OPERATED EYE (5 TO 6 TIMES A DAY IN TOTAL) INITIALLY.
     Route: 047
     Dates: start: 20170719
  3. LOTEMAX [Suspect]
     Active Substance: LOTEPREDNOL ETABONATE
     Route: 047
     Dates: start: 2017
  4. LOTEMAX [Suspect]
     Active Substance: LOTEPREDNOL ETABONATE
     Dosage: ONE DROP PER WEEK IN THE LEFT OPERATED EYE
     Route: 047
  5. LUMIGAN [Concomitant]
     Active Substance: BIMATOPROST
     Indication: PRODUCT USED FOR UNKNOWN INDICATION
     Dosage: ONE DROP EACH IN BOTH THE EYES IN EVENING.
     Route: 047
  6. LOTEMAX [Suspect]
     Active Substance: LOTEPREDNOL ETABONATE
     Dosage: ONE DROP EVERY 3 HOURS IN THE LEFT OPERATED EYE.
     Route: 047
     Dates: start: 2017

REACTIONS (7)
  - Dysphonia [Recovering/Resolving]
  - Fatigue [Recovering/Resolving]
  - Speech disorder [Recovering/Resolving]
  - Superficial injury of eye [Recovering/Resolving]
  - Drug ineffective [Not Recovered/Not Resolved]
  - Oropharyngeal pain [Recovering/Resolving]
  - Pain [Recovering/Resolving]

NARRATIVE: CASE EVENT DATE: 201707
